FAERS Safety Report 11716550 (Version 4)
Quarter: 2019Q1

REPORT INFORMATION
  Report Type: Spontaneous
  Country: US (occurrence: US)
  Receive Date: 20151109
  Receipt Date: 20190128
  Transmission Date: 20190417
  Serious: Yes (Other)
  Sender: FDA-Public Use
  Company Number: US-DSJP-DSU-2015-125968

PATIENT
  Age: 38 Year
  Sex: Female
  Weight: 76.19 kg

DRUGS (2)
  1. AZOR [Suspect]
     Active Substance: AMLODIPINE BESYLATE\OLMESARTAN MEDOXOMIL
     Indication: PRODUCT USED FOR UNKNOWN INDICATION
     Dosage: UNK
  2. BENICAR HCT [Suspect]
     Active Substance: HYDROCHLOROTHIAZIDE\OLMESARTAN MEDOXOMIL
     Indication: HYPERTENSION
     Dosage: 40/12.5 MG, QD
     Dates: start: 20060412, end: 20100604

REACTIONS (7)
  - Dizziness [Unknown]
  - Sprue-like enteropathy [Recovered/Resolved]
  - Constipation [Unknown]
  - Gastrooesophageal reflux disease [Unknown]
  - Peptic ulcer [Unknown]
  - Alopecia [Unknown]
  - Gastric ulcer [Unknown]

NARRATIVE: CASE EVENT DATE: 20060412
